FAERS Safety Report 4684595-9 (Version None)
Quarter: 2005Q2

REPORT INFORMATION
  Report Type: 
  Country: None (occurrence: None)
  Receive Date: 20050531
  Receipt Date: 20040921
  Transmission Date: 20051028
  Serious: Yes (Other)
  Sender: FDA-Public Use
  Company Number: 200417202US

PATIENT
  Age: 80 Year
  Sex: Male

DRUGS (2)
  1. LOVENOX [Suspect]
     Indication: THROMBOSIS PROPHYLAXIS
     Dosage: 90 MG BID SC
     Route: 058
     Dates: start: 20040918, end: 20040921
  2. CLOPIDOGREL [Concomitant]

REACTIONS (3)
  - CONTUSION [None]
  - HAEMOGLOBIN DECREASED [None]
  - HAEMORRHAGE [None]
